FAERS Safety Report 8808348 (Version 2)
Quarter: 2014Q2

REPORT INFORMATION
  Report Type: Spontaneous
  Country: CA (occurrence: CA)
  Receive Date: 20120926
  Receipt Date: 20131003
  Transmission Date: 20141212
  Serious: Yes (Death, Hospitalization)
  Sender: FDA-Public Use
  Company Number: CA-RANBAXY-2012US-60086

PATIENT
  Age: 53 Year
  Sex: Male

DRUGS (1)
  1. CLARITHROMYCIN [Suspect]
     Indication: SINUSITIS
     Dosage: 1000 MG/DAY
     Route: 048

REACTIONS (1)
  - Mania [Recovering/Resolving]
